FAERS Safety Report 8417681-8 (Version None)
Quarter: 2012Q2

REPORT INFORMATION
  Report Type: 
  Country: None (occurrence: None)
  Receive Date: 20120607
  Receipt Date: 20120604
  Transmission Date: 20120825
  Serious: Yes (Death, Hospitalization, Other)
  Sender: FDA-Public Use
  Company Number: US-AMGEN-USASP2011011287

PATIENT
  Age: 68 Year
  Sex: Female
  Weight: 67.12 kg

DRUGS (5)
  1. LASIX [Concomitant]
     Dosage: 20 MG, UNK
     Route: 048
  2. FOLIC ACID [Concomitant]
     Dosage: 1 MG, UNK
     Route: 048
  3. CYCLOSPORINE [Concomitant]
  4. POTASSIUM CHLORIDE [Concomitant]
     Dosage: 10 MEQ, UNK
     Route: 048
  5. NPLATE [Suspect]
     Indication: IDIOPATHIC THROMBOCYTOPENIC PURPURA
     Dosage: 1 MUG/KG, ONE TIME DOSE
     Route: 058
     Dates: start: 20110216, end: 20110223

REACTIONS (4)
  - APLASTIC ANAEMIA [None]
  - BONE MARROW FAILURE [None]
  - MULTIPLE MYELOMA [None]
  - HYPOXIA [None]
